FAERS Safety Report 4717766-3 (Version None)
Quarter: 2005Q3

REPORT INFORMATION
  Report Type: 
  Country: None (occurrence: None)
  Receive Date: 20050718
  Receipt Date: 20050718
  Transmission Date: 20060218
  Serious: No
  Sender: FDA-Public Use
  Company Number: None

PATIENT
  Sex: Male
  Weight: 73.8 kg

DRUGS (9)
  1. . [Concomitant]
  2. FLUDARABINE PHOSPHATE [Suspect]
     Dosage: 300 MG
     Dates: start: 20041214, end: 20041218
  3. BUSULFAN [Suspect]
     Dosage: 496 MG
     Dates: start: 20041217, end: 20041219
  4. . [Concomitant]
  5. . [Concomitant]
  6. CELLCEPT [Concomitant]
  7. DAPSONE [Concomitant]
  8. MEDROL [Concomitant]
  9. VORICONAZOLE [Concomitant]

REACTIONS (10)
  - BACK PAIN [None]
  - CYSTITIS HAEMORRHAGIC [None]
  - DISCOMFORT [None]
  - DIZZINESS [None]
  - DYSURIA [None]
  - HAEMATURIA [None]
  - NAUSEA [None]
  - PENILE PAIN [None]
  - POLLAKIURIA [None]
  - URINARY TRACT DISORDER [None]
